FAERS Safety Report 13697357 (Version 1)
Quarter: 2017Q2

REPORT INFORMATION
  Report Type: Spontaneous
  Country: US (occurrence: US)
  Receive Date: 20170628
  Receipt Date: 20170628
  Transmission Date: 20170830
  Serious: Yes (Other)
  Sender: FDA-Public Use
  Company Number: US-BAYER-2017-118372

PATIENT
  Age: 72 Year
  Sex: Male

DRUGS (7)
  1. RUXOLITINIB [Suspect]
     Active Substance: RUXOLITINIB
     Indication: POLYCYTHAEMIA
     Dosage: 20 MG, BID
     Route: 048
     Dates: start: 20150116
  2. RUXOLITINIB [Suspect]
     Active Substance: RUXOLITINIB
     Indication: ESSENTIAL THROMBOCYTHAEMIA
     Dosage: 10 MG, BID
     Route: 048
  3. VALTREX [Concomitant]
     Active Substance: VALACYCLOVIR HYDROCHLORIDE
     Indication: HERPES ZOSTER
  4. BAYER ASPIRIN [Suspect]
     Active Substance: ASPIRIN
     Dosage: UNK
     Dates: end: 201609
  5. RUXOLITINIB [Suspect]
     Active Substance: RUXOLITINIB
     Indication: POLYCYTHAEMIA
     Dosage: 20 MG, BID (20MG AM AND 20 MG PM)
     Route: 048
     Dates: start: 20160721
  6. AMLODIPINE [Concomitant]
     Active Substance: AMLODIPINE BESYLATE
  7. RUXOLITINIB [Suspect]
     Active Substance: RUXOLITINIB
     Indication: POLYCYTHAEMIA
     Dosage: 10 MG AM AND 20 MG PM
     Route: 048
     Dates: start: 20160315

REACTIONS (4)
  - Rectal haemorrhage [None]
  - Epistaxis [Recovered/Resolved]
  - Rectal haemorrhage [None]
  - Anaemia [None]

NARRATIVE: CASE EVENT DATE: 201501
